FAERS Safety Report 9868724 (Version 3)
Quarter: 2014Q3

REPORT INFORMATION
  Report Type: Spontaneous
  Country: US (occurrence: US)
  Receive Date: 20140204
  Receipt Date: 20140715
  Transmission Date: 20150326
  Serious: Yes (Hospitalization, Other)
  Sender: FDA-Public Use
  Company Number: US-009507513-1402USA001277

PATIENT
  Sex: Female

DRUGS (1)
  1. NUVARING [Suspect]
     Active Substance: ETHINYL ESTRADIOL\ETONOGESTREL
     Indication: PRODUCT USED FOR UNKNOWN INDICATION
     Dosage: UNK
     Route: 067
     Dates: end: 20110416

REACTIONS (13)
  - Adverse drug reaction [Unknown]
  - Cardiac ablation [Unknown]
  - Dermatitis [Unknown]
  - Adenoidectomy [Unknown]
  - Hypothyroidism [Unknown]
  - Pulmonary embolism [Unknown]
  - Supraventricular tachycardia [Unknown]
  - Asthma [Unknown]
  - Rhinitis allergic [Unknown]
  - Pulmonary embolism [Unknown]
  - Depression [Unknown]
  - Tonsillectomy [Unknown]
  - Scar excision [Unknown]

NARRATIVE: CASE EVENT DATE: 201102
